FAERS Safety Report 6706021-8 (Version None)
Quarter: 2010Q2

REPORT INFORMATION
  Report Type: 
  Country: None (occurrence: None)
  Receive Date: 20100429
  Receipt Date: 20100421
  Transmission Date: 20101027
  Serious: Yes (Other)
  Sender: FDA-Public Use
  Company Number: 2010SP023288

PATIENT
  Age: 34 Year
  Sex: Female
  Weight: 97.5234 kg

DRUGS (7)
  1. NUVARING [Suspect]
     Indication: CONTRACEPTION
     Dates: start: 20090715, end: 20091101
  2. OMEPRAZOLE (CON.) [Concomitant]
  3. WELLBUTRIN (CON.) [Concomitant]
  4. SPIRONOLACTONE (CON.) [Concomitant]
  5. PROTONIX (CON.) [Concomitant]
  6. MENTAX (CON.) [Concomitant]
  7. VITAMINS (CON.) [Concomitant]

REACTIONS (5)
  - ABDOMINAL PAIN [None]
  - AMENORRHOEA [None]
  - ASTHMA [None]
  - MENSTRUATION IRREGULAR [None]
  - URINARY TRACT INFECTION [None]
